FAERS Safety Report 9098253 (Version 2)
Quarter: 2013Q1

REPORT INFORMATION
  Report Type: Spontaneous
  Country: US (occurrence: US)
  Receive Date: 20130213
  Receipt Date: 20130304
  Transmission Date: 20140127
  Serious: Yes (Hospitalization, Other)
  Sender: FDA-Public Use
  Company Number: US-BAXTER-2013BAX004812

PATIENT
  Sex: Male

DRUGS (2)
  1. DIANEAL LOW CALCIUM [Suspect]
     Indication: PERITONEAL DIALYSIS
     Route: 033
     Dates: start: 20100524
  2. DIANEAL LOW CALCIUM [Suspect]
     Route: 033

REACTIONS (5)
  - Umbilical hernia [Unknown]
  - Inguinal hernia [Unknown]
  - Pseudomonas infection [Unknown]
  - Catheter site infection [Unknown]
  - Device related infection [Recovering/Resolving]
